FAERS Safety Report 21643401 (Version 1)
Quarter: 2022Q4

REPORT INFORMATION
  Report Type: Spontaneous
  Country: IT (occurrence: IT)
  Receive Date: 20221125
  Receipt Date: 20221125
  Transmission Date: 20230112
  Serious: Yes (Other)
  Sender: FDA-Public Use
  Company Number: IT-SUN PHARMACEUTICAL INDUSTRIES LTD-2022R1-365171

PATIENT
  Age: 84 Year
  Sex: Male

DRUGS (4)
  1. ATROPINE [Suspect]
     Active Substance: ATROPINE
     Indication: Hypotony of eye
     Dosage: 1 PERCENT
     Route: 065
  2. ATROPINE [Suspect]
     Active Substance: ATROPINE
     Indication: Choroidal detachment
  3. DEXAMETHASONE [Suspect]
     Active Substance: DEXAMETHASONE
     Indication: Hypotony of eye
     Dosage: UNK (2MG/ML)
     Route: 065
  4. DEXAMETHASONE [Suspect]
     Active Substance: DEXAMETHASONE
     Indication: Choroidal detachment

REACTIONS (1)
  - Therapy non-responder [Unknown]
